FAERS Safety Report 5399493-5 (Version None)
Quarter: 2007Q3

REPORT INFORMATION
  Report Type: 
  Country: None (occurrence: None)
  Receive Date: 20070727
  Receipt Date: 20070720
  Transmission Date: 20080115
  Serious: Yes (Hospitalization, Disabling, Other)
  Sender: FDA-Public Use
  Company Number: US-PFIZER INC-2004220225US

PATIENT
  Sex: Female

DRUGS (6)
  1. BEXTRA [Suspect]
     Indication: JOINT SWELLING
     Route: 048
     Dates: start: 20040329, end: 20040101
  2. CODEINE SUL TAB [Suspect]
     Indication: ILL-DEFINED DISORDER
  3. ACIPHEX [Suspect]
     Indication: GASTRIC DISORDER
  4. ACIPHEX [Suspect]
     Indication: OESOPHAGEAL DISORDER
  5. CORTISONE ACETATE TAB [Concomitant]
  6. TYLENOL (CAPLET) [Concomitant]

REACTIONS (22)
  - BLOOD POTASSIUM DECREASED [None]
  - CIRCULATORY COLLAPSE [None]
  - CONFUSIONAL STATE [None]
  - DIARRHOEA [None]
  - DRUG HYPERSENSITIVITY [None]
  - EROSIVE DUODENITIS [None]
  - GASTRIC ULCER [None]
  - GASTROINTESTINAL HAEMORRHAGE [None]
  - HALLUCINATION [None]
  - INFECTION [None]
  - INSOMNIA [None]
  - MENTAL DISORDER [None]
  - MUSCLE SPASMS [None]
  - OBSTRUCTIVE AIRWAYS DISORDER [None]
  - OEDEMA PERIPHERAL [None]
  - OESOPHAGEAL OBSTRUCTION [None]
  - OESOPHAGEAL ULCER [None]
  - POLLAKIURIA [None]
  - PRURITUS GENERALISED [None]
  - SUICIDAL IDEATION [None]
  - VOMITING [None]
  - WEIGHT DECREASED [None]
